FAERS Safety Report 4881914-5 (Version None)
Quarter: 2006Q1

REPORT INFORMATION
  Report Type: 
  Country: None (occurrence: None)
  Receive Date: 20060112
  Receipt Date: 20050104
  Transmission Date: 20060701
  Serious: Yes (Hospitalization)
  Sender: FDA-Public Use
  Company Number: 220883

PATIENT
  Age: 51 Year
  Sex: Female
  Weight: 65.3 kg

DRUGS (9)
  1. ERLOTINIB (ERLOTINIB) TABLET [Suspect]
     Indication: NEOPLASM MALIGNANT
     Dosage: 100 MG, QD, ORAL
     Route: 048
     Dates: start: 20051128
  2. AVASTIN [Suspect]
     Indication: NEOPLASM MALIGNANT
     Dosage: 10 MG/KG, Q2W, INTRAVENOUS
     Route: 042
     Dates: start: 20051128
  3. CISPLATIN [Concomitant]
  4. RADIATION THERAPY (RADIATION THERAPY) [Concomitant]
  5. KLONOPIN [Concomitant]
  6. REMERON [Concomitant]
  7. RITALIN [Concomitant]
  8. OXYCONTIN [Concomitant]
  9. OXYCODONE (OXYCODONE) [Concomitant]

REACTIONS (9)
  - HAEMOGLOBIN DECREASED [None]
  - LIVER FUNCTION TEST ABNORMAL [None]
  - NEUTROPHIL PERCENTAGE INCREASED [None]
  - PLEURAL EFFUSION [None]
  - PROTHROMBIN TIME PROLONGED [None]
  - PULMONARY OEDEMA [None]
  - RED BLOOD CELL COUNT DECREASED [None]
  - RESPIRATORY DISTRESS [None]
  - VENTRICULAR DYSFUNCTION [None]
